FAERS Safety Report 11707108 (Version 1)
Quarter: 2015Q4

REPORT INFORMATION
  Report Type: Spontaneous
  Country: US (occurrence: US)
  Receive Date: 20151104
  Receipt Date: 20151104
  Transmission Date: 20160304
  Serious: No
  Sender: FDA-Public Use
  Company Number: US-ELI_LILLY_AND_COMPANY-US201102003882

PATIENT
  Age: 63 Year
  Sex: Female

DRUGS (1)
  1. FORTEO [Suspect]
     Active Substance: TERIPARATIDE
     Dosage: 20 UG, DAILY (1/D)
     Dates: start: 201012

REACTIONS (5)
  - Arthralgia [Unknown]
  - Bone disorder [Unknown]
  - Drug hypersensitivity [Unknown]
  - Joint swelling [Unknown]
  - Headache [Unknown]

NARRATIVE: CASE EVENT DATE: 201012
